FAERS Safety Report 11506800 (Version 1)
Quarter: 2015Q3

REPORT INFORMATION
  Report Type: Spontaneous
  Country: US (occurrence: None)
  Receive Date: 20150914
  Receipt Date: 20150914
  Transmission Date: 20151125
  Serious: No
  Sender: FDA-Public Use
  Company Number: None

PATIENT
  Age: 67 Year
  Sex: Female

DRUGS (9)
  1. NIACIN. [Concomitant]
     Active Substance: NIACIN
  2. IBRANCE [Suspect]
     Active Substance: PALBOCICLIB
     Indication: BREAST CANCER
     Dosage: 75MG DAILY FOR 21 DAYS ORAL
     Route: 048
     Dates: start: 20150728
  3. ALLOPURINOL. [Concomitant]
     Active Substance: ALLOPURINOL
  4. LISINOPRIL. [Concomitant]
     Active Substance: LISINOPRIL
  5. DILTIAZEM [Concomitant]
     Active Substance: DILTIAZEM
  6. ASPIRIN. [Concomitant]
     Active Substance: ASPIRIN
  7. IBRANCE [Suspect]
     Active Substance: PALBOCICLIB
     Indication: BONE CANCER
     Dosage: 75MG DAILY FOR 21 DAYS ORAL
     Route: 048
     Dates: start: 20150728
  8. LETROZOLE. [Concomitant]
     Active Substance: LETROZOLE
  9. CHLORTHALID [Concomitant]

REACTIONS (2)
  - Fatigue [None]
  - Decreased appetite [None]

NARRATIVE: CASE EVENT DATE: 201508
